FAERS Safety Report 18472744 (Version 1)
Quarter: 2020Q4

REPORT INFORMATION
  Report Type: Spontaneous
  Country: US (occurrence: US)
  Receive Date: 20201105
  Receipt Date: 20201105
  Transmission Date: 20210114
  Serious: No
  Sender: FDA-Public Use
  Company Number: None

PATIENT
  Age: 56 Year
  Sex: Female
  Weight: 111.13 kg

DRUGS (3)
  1. REMICADE [Suspect]
     Active Substance: INFLIXIMAB
     Indication: RHEUMATOID ARTHRITIS
     Dosage: OTHER FREQUENCY:WK 0,2 AND 6; AS DIRECTED?
     Route: 042
     Dates: start: 201812
  2. REMICADE [Suspect]
     Active Substance: INFLIXIMAB
     Indication: SLEEP APNOEA SYNDROME
     Dosage: OTHER FREQUENCY:WK 0,2 AND 6; AS DIRECTED?
     Route: 042
     Dates: start: 201812
  3. REMICADE [Suspect]
     Active Substance: INFLIXIMAB
     Indication: OSTEOARTHRITIS
     Dosage: OTHER FREQUENCY:WK 0,2 AND 6; AS DIRECTED?
     Route: 042
     Dates: start: 201812

REACTIONS (1)
  - COVID-19 [None]
